FAERS Safety Report 20964849 (Version 4)
Quarter: 2022Q4

REPORT INFORMATION
  Report Type: Spontaneous
  Country: US (occurrence: US)
  Receive Date: 20220616
  Receipt Date: 20221003
  Transmission Date: 20230113
  Serious: Yes (Other)
  Sender: FDA-Public Use
  Company Number: US-GLAXOSMITHKLINE-US2022AMR092404

PATIENT
  Sex: Female

DRUGS (3)
  1. ZEJULA [Suspect]
     Active Substance: NIRAPARIB
     Indication: Ovarian cancer
     Dosage: 200 MG, QD
     Route: 048
     Dates: start: 202205
  2. ZEJULA [Suspect]
     Active Substance: NIRAPARIB
     Dosage: 200 MG, QD (QPM)
     Dates: start: 20220528
  3. ZEJULA [Suspect]
     Active Substance: NIRAPARIB
     Dosage: 200 MG, QD (QPM)

REACTIONS (15)
  - Pancreatitis [Unknown]
  - Nausea [Not Recovered/Not Resolved]
  - Arthralgia [Unknown]
  - Fatigue [Not Recovered/Not Resolved]
  - Renal function test abnormal [Unknown]
  - Arthritis [Unknown]
  - Exostosis [Unknown]
  - Feeling abnormal [Recovering/Resolving]
  - Decreased appetite [Unknown]
  - Blood pressure increased [Unknown]
  - Contusion [Unknown]
  - Vasodilatation [Unknown]
  - Abdominal pain [Unknown]
  - Flank pain [Unknown]
  - Product dose omission in error [Unknown]
